FAERS Safety Report 4876803-6 (Version None)
Quarter: 2006Q1

REPORT INFORMATION
  Report Type: 
  Country: None (occurrence: None)
  Receive Date: 20060110
  Receipt Date: 20030605
  Transmission Date: 20060701
  Serious: Yes (Hospitalization)
  Sender: FDA-Public Use
  Company Number: US-MERCK-0306USA00793

PATIENT
  Age: 57 Year
  Sex: Female
  Weight: 94 kg

DRUGS (25)
  1. VIOXX [Suspect]
     Indication: ARTHRALGIA
     Route: 048
     Dates: start: 19990819, end: 20000101
  2. VIOXX [Suspect]
     Route: 048
     Dates: start: 19990930
  3. VIOXX [Suspect]
     Route: 048
     Dates: start: 20000607
  4. VIOXX [Suspect]
     Route: 048
     Dates: start: 20000817, end: 20010109
  5. VIOXX [Suspect]
     Route: 048
     Dates: start: 20010101
  6. VIOXX [Suspect]
     Route: 048
     Dates: start: 20011213, end: 20020211
  7. VIOXX [Suspect]
     Route: 048
     Dates: start: 20020212, end: 20020627
  8. VIOXX [Suspect]
     Route: 048
     Dates: start: 19990819, end: 20000101
  9. VIOXX [Suspect]
     Route: 048
     Dates: start: 19990930
  10. VIOXX [Suspect]
     Route: 048
     Dates: start: 20000607
  11. VIOXX [Suspect]
     Route: 048
     Dates: start: 20000817, end: 20010109
  12. VIOXX [Suspect]
     Route: 048
     Dates: start: 20010101
  13. VIOXX [Suspect]
     Route: 048
     Dates: start: 20011213, end: 20020211
  14. VIOXX [Suspect]
     Route: 048
     Dates: start: 20020212, end: 20020627
  15. AMBIEN [Concomitant]
     Route: 048
  16. AMBIEN [Concomitant]
     Route: 048
  17. ASPIRIN [Concomitant]
     Route: 065
  18. TOPROL-XL [Concomitant]
     Route: 065
  19. DITROPAN XL [Concomitant]
     Route: 065
  20. LORTAB [Suspect]
     Route: 048
  21. ZANTAC [Concomitant]
     Route: 065
  22. CARDIZEM [Concomitant]
     Route: 065
  23. DETROL [Concomitant]
     Route: 048
  24. NORVASC [Concomitant]
     Route: 048
  25. TYLENOL [Concomitant]
     Route: 065

REACTIONS (23)
  - ABDOMINAL PAIN [None]
  - AORTIC VALVE INCOMPETENCE [None]
  - ARTHRALGIA [None]
  - DIASTOLIC DYSFUNCTION [None]
  - DIVERTICULUM [None]
  - DIZZINESS [None]
  - DRUG ADMINISTRATION ERROR [None]
  - DYSPEPSIA [None]
  - DYSPNOEA [None]
  - EPIGASTRIC DISCOMFORT [None]
  - HERPES ZOSTER [None]
  - HYPERTENSION [None]
  - HYPERTONIC BLADDER [None]
  - INSOMNIA [None]
  - INTERVERTEBRAL DISC DEGENERATION [None]
  - MITRAL VALVE INCOMPETENCE [None]
  - OEDEMA [None]
  - OSTEOARTHRITIS [None]
  - PAIN [None]
  - SPINAL OSTEOARTHRITIS [None]
  - STOMACH DISCOMFORT [None]
  - URINARY TRACT INFECTION [None]
  - URTICARIA PAPULAR [None]
